FAERS Safety Report 19709856 (Version 1)
Quarter: 2021Q3

REPORT INFORMATION
  Report Type: Other
  Country: CN (occurrence: CN)
  Receive Date: 20210817
  Receipt Date: 20210817
  Transmission Date: 20211014
  Serious: Yes (Other)
  Sender: FDA-Public Use
  Company Number: CN-ROCHE-2889698

PATIENT

DRUGS (8)
  1. PEMETREXED. [Suspect]
     Active Substance: PEMETREXED
     Indication: LUNG ADENOCARCINOMA
     Dosage: ON DAYS 1; ADMINISTERED AT 3?WEEK INTERVALS
     Route: 042
  2. GEMCITABINE. [Suspect]
     Active Substance: GEMCITABINE
     Indication: LUNG ADENOCARCINOMA
     Dosage: ON DAYS 1?8; ADMINISTERED AT 3?WEEK INTERVALS
     Route: 042
  3. PACLITAXEL. [Suspect]
     Active Substance: PACLITAXEL
     Indication: LUNG ADENOCARCINOMA
     Dosage: ON DAYS 1; ADMINISTERED AT 3?WEEK INTERVALS
     Route: 042
  4. BEVACIZUMAB. [Suspect]
     Active Substance: BEVACIZUMAB
     Indication: LUNG ADENOCARCINOMA
     Dosage: ON DAY 1; ADMINISTERED AT 3?WEEK INTERVALS
     Route: 042
  5. ENDOSTATIN [Suspect]
     Active Substance: ENDOSTATIN
     Indication: LUNG ADENOCARCINOMA
     Dosage: ON DAYS 1?14, ADMINISTERED AT 3?WEEK INTERVALS
     Route: 042
  6. CARBOPLATIN. [Suspect]
     Active Substance: CARBOPLATIN
     Indication: LUNG ADENOCARCINOMA
     Dosage: AREA UNDER THE CURVE, 4?5), ON DAY 1; ADMINISTERED AT 3?WEEK INTERVALS
     Route: 042
  7. DOCETAXEL. [Suspect]
     Active Substance: DOCETAXEL
     Indication: LUNG ADENOCARCINOMA
     Dosage: ADMINISTERED AT 3?WEEK INTERVALS
     Route: 042
  8. CISPLATIN. [Suspect]
     Active Substance: CISPLATIN
     Indication: LUNG ADENOCARCINOMA
     Dosage: OVER 2 DAYS ON DAYS 1?2; ADMINISTERED AT 3?WEEK INTERVALS
     Route: 042

REACTIONS (9)
  - Embolism arterial [Unknown]
  - Embolism venous [Unknown]
  - Haemoptysis [Unknown]
  - Proteinuria [Unknown]
  - Hypertension [Unknown]
  - Haemorrhage [Unknown]
  - Arrhythmia [Unknown]
  - Gastrointestinal perforation [Unknown]
  - Central nervous system haemorrhage [Unknown]
